FAERS Safety Report 7023865-6 (Version None)
Quarter: 2010Q4

REPORT INFORMATION
  Report Type: 
  Country: None (occurrence: None)
  Receive Date: 20101001
  Receipt Date: 20100928
  Transmission Date: 20110411
  Serious: Yes (Life-Threatening, Hospitalization)
  Sender: FDA-Public Use
  Company Number: US-CEPHALON-2010001656

PATIENT
  Sex: Female
  Weight: 85 kg

DRUGS (4)
  1. TREANDA [Suspect]
     Indication: CHRONIC LYMPHOCYTIC LEUKAEMIA
     Route: 041
     Dates: start: 20100208, end: 20100323
  2. ALDACTONE [Concomitant]
  3. TOPROL-XL [Concomitant]
  4. MAG OX [Concomitant]

REACTIONS (7)
  - DISSEMINATED INTRAVASCULAR COAGULATION [None]
  - HEPATIC ENZYME INCREASED [None]
  - HEPATIC FAILURE [None]
  - PYREXIA [None]
  - RENAL FAILURE ACUTE [None]
  - SEPSIS [None]
  - STAPHYLOCOCCAL INFECTION [None]
